FAERS Safety Report 20905613 (Version 2)
Quarter: 2023Q1

REPORT INFORMATION
  Report Type: Report from Study
  Country: US (occurrence: US)
  Receive Date: 20220602
  Receipt Date: 20230220
  Transmission Date: 20230418
  Serious: Yes (Hospitalization, Other)
  Sender: FDA-Public Use
  Company Number: US-HRAPH01-2022000087

PATIENT
  Age: 57 Year
  Sex: Male

DRUGS (14)
  1. LYSODREN [Suspect]
     Active Substance: MITOTANE
     Indication: Adrenocortical carcinoma
     Dosage: 5 TABLETS TWICE DAILY
     Route: 048
     Dates: start: 20211124
  2. LYSODREN [Suspect]
     Active Substance: MITOTANE
     Indication: Adrenocortical carcinoma
     Dosage: 06 TABLETS TWICE DAILY
     Route: 048
  3. LYSODREN [Suspect]
     Active Substance: MITOTANE
     Indication: Adrenocortical carcinoma
     Dosage: 7 TABLETS TWICE DAILY
     Route: 048
  4. LYSODREN [Suspect]
     Active Substance: MITOTANE
     Indication: Adrenocortical carcinoma
     Route: 048
     Dates: end: 20220414
  5. LYSODREN [Suspect]
     Active Substance: MITOTANE
     Indication: Adrenocortical carcinoma
     Route: 048
     Dates: start: 20220501
  6. Amlodipine tab 10 mg [Concomitant]
     Indication: Product used for unknown indication
  7. KLOR-CON M20 TAB 20MEQ ER [Concomitant]
     Indication: Product used for unknown indication
  8. Lisinopril tab 40 mg [Concomitant]
     Indication: Product used for unknown indication
  9. Loperamide cap 2 mg [Concomitant]
     Indication: Product used for unknown indication
  10. Ondansetron tab 4 mg ODT [Concomitant]
     Indication: Product used for unknown indication
  11. Prochlorper tab 10 mg [Concomitant]
     Indication: Product used for unknown indication
  12. ACETAMINOPHE TAB 500MG [Concomitant]
     Indication: Product used for unknown indication
  13. ATENOLOL TAB 50MG [Concomitant]
     Indication: Product used for unknown indication
  14. ESCITALOPRAM TAB 20MG [Concomitant]
     Indication: Product used for unknown indication

REACTIONS (3)
  - Acute kidney injury [Recovering/Resolving]
  - Headache [Unknown]
  - Diarrhoea [Recovering/Resolving]

NARRATIVE: CASE EVENT DATE: 20220121
